FAERS Safety Report 17985367 (Version 6)
Quarter: 2020Q4

REPORT INFORMATION
  Report Type: Spontaneous
  Country: GB (occurrence: GB)
  Receive Date: 20200706
  Receipt Date: 20201013
  Transmission Date: 20210113
  Serious: Yes (Death, Hospitalization, Other)
  Sender: FDA-Public Use
  Company Number: GB-AKCEA THERAPEUTICS-2020IS001276

PATIENT
  Age: 77 Year
  Sex: Male

DRUGS (2)
  1. ISSD (INTEGRATED SYRINGE SAFETY DEVICE) [Suspect]
     Active Substance: DEVICE
  2. TEGSEDI [Suspect]
     Active Substance: INOTERSEN SODIUM
     Indication: HEREDITARY NEUROPATHIC AMYLOIDOSIS
     Route: 058
     Dates: end: 20200810

REACTIONS (12)
  - Hospitalisation [Unknown]
  - Insomnia [Unknown]
  - Oedema peripheral [Unknown]
  - Confusional state [Unknown]
  - Pain in extremity [Unknown]
  - Fatigue [Unknown]
  - Mobility decreased [Unknown]
  - General physical health deterioration [Unknown]
  - Renal impairment [Not Recovered/Not Resolved]
  - Fall [Unknown]
  - Death [Fatal]
  - Malaise [Unknown]

NARRATIVE: CASE EVENT DATE: 20200624
